FAERS Safety Report 18393864 (Version 6)
Quarter: 2021Q2

REPORT INFORMATION
  Report Type: Spontaneous
  Country: CA (occurrence: CA)
  Receive Date: 20201016
  Receipt Date: 20210617
  Transmission Date: 20210717
  Serious: Yes (Life-Threatening, Hospitalization, Disabling)
  Sender: FDA-Public Use
  Company Number: NVSC2020CA278521

PATIENT
  Age: 12 Year
  Sex: Female
  Weight: 64 kg

DRUGS (80)
  1. TRIAMCINOLONE ACETONIDE. [Suspect]
     Active Substance: TRIAMCINOLONE ACETONIDE
     Indication: JUVENILE IDIOPATHIC ARTHRITIS
     Dosage: UNK
     Route: 065
  2. TRIAMCINOLONE ACETONIDE. [Suspect]
     Active Substance: TRIAMCINOLONE ACETONIDE
     Indication: RHINITIS PERENNIAL
     Dosage: UNK, (SUSPENSION INTRAARTICULAR)
     Route: 014
  3. TRIAMCINOLONE ACETONIDE. [Suspect]
     Active Substance: TRIAMCINOLONE ACETONIDE
     Dosage: UNK
     Route: 065
  4. INFLIXIMAB [Suspect]
     Active Substance: INFLIXIMAB
     Indication: RHEUMATOID ARTHRITIS
     Dosage: 5 MG
     Route: 042
  5. HYDROXYCHLOROQUINE SULFATE. [Suspect]
     Active Substance: HYDROXYCHLOROQUINE SULFATE
     Indication: JUVENILE IDIOPATHIC ARTHRITIS
     Dosage: 5 DF, QD
     Route: 048
  6. ACTEMRA [Suspect]
     Active Substance: TOCILIZUMAB
     Indication: RHEUMATOID ARTHRITIS
     Dosage: 280 MG
     Route: 042
  7. IMMUNOGLOBULIN [IMMUNOGLOBULINS NOS] [Suspect]
     Active Substance: IMMUNE GLOBULIN NOS
     Indication: RHEUMATOID ARTHRITIS
     Dosage: 3.0 MG/KG, QW
     Route: 042
  8. NAPROXEN. [Suspect]
     Active Substance: NAPROXEN
     Indication: JUVENILE IDIOPATHIC ARTHRITIS
     Dosage: UNK
     Route: 065
  9. NAPROXEN. [Suspect]
     Active Substance: NAPROXEN
     Indication: RHEUMATOID ARTHRITIS
     Dosage: UNK
     Route: 065
  10. GAMASTAN [Suspect]
     Active Substance: HUMAN IMMUNOGLOBULIN G
     Indication: JUVENILE IDIOPATHIC ARTHRITIS
     Dosage: 70 MG, (LIQUID)
     Route: 030
  11. TOCILIZUMAB. [Suspect]
     Active Substance: TOCILIZUMAB
     Indication: RHEUMATOID ARTHRITIS
     Dosage: 280 MG, BIW
     Route: 042
  12. TRIAMCINOLONE [Suspect]
     Active Substance: TRIAMCINOLONE
     Indication: SEASONAL ALLERGY
     Dosage: UNK
     Route: 065
  13. INFLIXIMAB [Suspect]
     Active Substance: INFLIXIMAB
     Dosage: 3 MG
     Route: 042
  14. INFLIXIMAB [Suspect]
     Active Substance: INFLIXIMAB
     Dosage: 3 MG/KG
     Route: 042
  15. HYDROXYCHLOROQUINE SULFATE. [Suspect]
     Active Substance: HYDROXYCHLOROQUINE SULFATE
     Dosage: 5 MG/KG, Q24H
     Route: 048
  16. HYDROXYCHLOROQUINE SULFATE. [Suspect]
     Active Substance: HYDROXYCHLOROQUINE SULFATE
     Dosage: 5 MG, QD
     Route: 048
  17. ACTEMRA [Suspect]
     Active Substance: TOCILIZUMAB
     Indication: STILL^S DISEASE
     Dosage: 280 MG
     Route: 042
  18. ANAKINRA [Suspect]
     Active Substance: ANAKINRA
     Indication: RHEUMATOID ARTHRITIS
     Dosage: 50 MG, QD
     Route: 058
  19. ENBREL [Suspect]
     Active Substance: ETANERCEPT
     Dosage: 12.5 MG, QD
     Route: 058
  20. ORENCIA [Suspect]
     Active Substance: ABATACEPT
     Indication: RHEUMATOID ARTHRITIS
     Dosage: UNK, QMO
     Route: 042
  21. ORENCIA [Suspect]
     Active Substance: ABATACEPT
     Dosage: 250 MG, QMO
     Route: 042
  22. TRIAMCINOLONE [Suspect]
     Active Substance: TRIAMCINOLONE
     Indication: JUVENILE IDIOPATHIC ARTHRITIS
     Dosage: 25 MG, Q2W
     Route: 058
  23. METHOTREXATE. [Suspect]
     Active Substance: METHOTREXATE
     Dosage: 15 MG/M2, QW
     Route: 065
  24. ANAKINRA [Suspect]
     Active Substance: ANAKINRA
     Indication: JUVENILE IDIOPATHIC ARTHRITIS
     Dosage: 50 MG, QW
     Route: 065
  25. ENBREL [Suspect]
     Active Substance: ETANERCEPT
     Indication: JUVENILE IDIOPATHIC ARTHRITIS
     Dosage: 25 MG, BIW
     Route: 058
  26. IMMUNOGLOBULIN [IMMUNOGLOBULINS NOS] [Suspect]
     Active Substance: IMMUNE GLOBULIN NOS
     Dosage: UNK
     Route: 065
  27. ORENCIA [Suspect]
     Active Substance: ABATACEPT
     Indication: JUVENILE IDIOPATHIC ARTHRITIS
     Dosage: 250 MG, QMO
     Route: 041
  28. ORENCIA [Suspect]
     Active Substance: ABATACEPT
     Dosage: 250 MG, QMO
     Route: 055
  29. SULFASALAZINE. [Suspect]
     Active Substance: SULFASALAZINE
     Indication: JUVENILE IDIOPATHIC ARTHRITIS
     Dosage: 250 MG, QD
     Route: 048
  30. TRIAMCINOLONE HEXACETONIDE [Suspect]
     Active Substance: TRIAMCINOLONE HEXACETONIDE
     Indication: JUVENILE IDIOPATHIC ARTHRITIS
  31. TRIAMCINOLONE ACETONIDE. [Suspect]
     Active Substance: TRIAMCINOLONE ACETONIDE
     Dosage: UNK
     Route: 065
  32. ERELZI [Suspect]
     Active Substance: ETANERCEPT-SZZS
     Dosage: 25 MG, BIW
     Route: 058
  33. METHOTREXATE. [Suspect]
     Active Substance: METHOTREXATE
     Indication: JUVENILE IDIOPATHIC ARTHRITIS
     Dosage: 15 MG/M2, QW
     Route: 058
  34. ACTEMRA [Suspect]
     Active Substance: TOCILIZUMAB
     Indication: JUVENILE IDIOPATHIC ARTHRITIS
     Dosage: 280 MG, Q2W
     Route: 042
  35. IMMUNOGLOBULIN [IMMUNOGLOBULINS NOS] [Suspect]
     Active Substance: IMMUNE GLOBULIN NOS
     Dosage: 70 G
     Route: 042
  36. SULFASALAZINE. [Suspect]
     Active Substance: SULFASALAZINE
     Indication: RHEUMATOID ARTHRITIS
     Dosage: 250 MG, Q24H
     Route: 048
  37. XELJANZ XR [Suspect]
     Active Substance: TOFACITINIB CITRATE
     Indication: RHEUMATOID ARTHRITIS
     Dosage: 11 MG, QD
     Route: 065
  38. FOLIC ACID. [Concomitant]
     Active Substance: FOLIC ACID
     Indication: PRODUCT USED FOR UNKNOWN INDICATION
     Dosage: UNK
     Route: 065
  39. TRIAMCINOLONE ACETONIDE. [Suspect]
     Active Substance: TRIAMCINOLONE ACETONIDE
     Indication: SEASONAL ALLERGY
     Dosage: 5 MG, QD
     Route: 048
  40. TRIAMCINOLONE ACETONIDE. [Suspect]
     Active Substance: TRIAMCINOLONE ACETONIDE
     Dosage: UNK
     Route: 065
  41. TRIAMCINOLONE [Suspect]
     Active Substance: TRIAMCINOLONE
     Indication: RHINITIS PERENNIAL
  42. ERELZI [Suspect]
     Active Substance: ETANERCEPT-SZZS
     Indication: JUVENILE IDIOPATHIC ARTHRITIS
     Dosage: 25 MG
     Route: 058
  43. INFLIXIMAB [Suspect]
     Active Substance: INFLIXIMAB
     Dosage: 3 MG/KG
     Route: 042
  44. HYDROXYCHLOROQUINE SULFATE. [Suspect]
     Active Substance: HYDROXYCHLOROQUINE SULFATE
     Indication: RHEUMATOID ARTHRITIS
     Dosage: 5 MG, QD
     Route: 048
  45. HYDROXYCHLOROQUINE SULFATE. [Suspect]
     Active Substance: HYDROXYCHLOROQUINE SULFATE
     Dosage: 5 MG/KG, QD
     Route: 048
  46. HYDROXYCHLOROQUINE SULFATE. [Suspect]
     Active Substance: HYDROXYCHLOROQUINE SULFATE
     Dosage: UNK
     Route: 048
  47. APO?PREDNISONE [Suspect]
     Active Substance: PREDNISONE
     Indication: RHEUMATOID ARTHRITIS
     Dosage: 3 MG, BID
     Route: 048
  48. APO?PREDNISONE [Suspect]
     Active Substance: PREDNISONE
     Dosage: UNK
     Route: 065
  49. TRIAMCINOLONE HEXACETONIDE [Suspect]
     Active Substance: TRIAMCINOLONE HEXACETONIDE
     Indication: RHEUMATOID ARTHRITIS
     Dosage: UNK
     Route: 065
  50. TOCILIZUMAB. [Suspect]
     Active Substance: TOCILIZUMAB
     Indication: JUVENILE IDIOPATHIC ARTHRITIS
     Dosage: 280 MG
     Route: 042
  51. APO TRIAMCINOLONE AQ [Suspect]
     Active Substance: TRIAMCINOLONE ACETONIDE
     Indication: RHEUMATOID ARTHRITIS
     Dosage: UNK, (SPRAY, METERED DOSE)
     Route: 065
  52. TRIAMCINOLONE ACETONIDE. [Suspect]
     Active Substance: TRIAMCINOLONE ACETONIDE
     Indication: RHEUMATOID ARTHRITIS
     Dosage: UNK
     Route: 065
  53. TRIAMCINOLONE [Suspect]
     Active Substance: TRIAMCINOLONE
     Indication: RHEUMATOID ARTHRITIS
     Dosage: UNK
     Route: 065
  54. ADALIMUMAB [Suspect]
     Active Substance: ADALIMUMAB
     Indication: JUVENILE IDIOPATHIC ARTHRITIS
     Dosage: UNK
     Route: 058
  55. METHOTREXATE. [Suspect]
     Active Substance: METHOTREXATE
     Indication: RHEUMATOID ARTHRITIS
     Dosage: 15 MG
     Route: 058
  56. INFLIXIMAB [Suspect]
     Active Substance: INFLIXIMAB
     Dosage: 3 MG, QW
     Route: 065
  57. PREDNISONE. [Suspect]
     Active Substance: PREDNISONE
     Indication: RHEUMATOID ARTHRITIS
     Dosage: 3 MG, BID
     Route: 048
  58. ANAKINRA [Suspect]
     Active Substance: ANAKINRA
     Dosage: UNK
     Route: 058
  59. APO?NAPROXEN [Suspect]
     Active Substance: NAPROXEN
     Indication: RHEUMATOID ARTHRITIS
     Dosage: UNK
     Route: 065
  60. ENBREL [Suspect]
     Active Substance: ETANERCEPT
     Dosage: 12.5 MG, QW
     Route: 058
  61. IMMUNOGLOBULIN [IMMUNOGLOBULINS NOS] [Suspect]
     Active Substance: IMMUNE GLOBULIN NOS
     Indication: JUVENILE IDIOPATHIC ARTHRITIS
     Dosage: 70 G
     Route: 042
  62. NAPROXEN SODIUM. [Suspect]
     Active Substance: NAPROXEN SODIUM
     Indication: JUVENILE IDIOPATHIC ARTHRITIS
     Dosage: UNK
     Route: 065
  63. ERELZI [Suspect]
     Active Substance: ETANERCEPT-SZZS
     Indication: RHEUMATOID ARTHRITIS
     Dosage: 12.5 MG, QW
     Route: 058
  64. PREDNISONE. [Suspect]
     Active Substance: PREDNISONE
     Indication: JUVENILE IDIOPATHIC ARTHRITIS
     Dosage: 5 MG, BID
     Route: 048
  65. ACTEMRA [Suspect]
     Active Substance: TOCILIZUMAB
     Dosage: 280 MG, BIW
     Route: 042
  66. ANAKINRA [Suspect]
     Active Substance: ANAKINRA
     Dosage: 50 MG, QD
     Route: 058
  67. APO?NAPROXEN [Suspect]
     Active Substance: NAPROXEN
     Indication: JUVENILE IDIOPATHIC ARTHRITIS
     Dosage: UNK
     Route: 065
  68. IMMUNOGLOBULIN [IMMUNOGLOBULINS NOS] [Suspect]
     Active Substance: IMMUNE GLOBULIN NOS
     Dosage: 70 MG
     Route: 042
  69. ORENCIA [Suspect]
     Active Substance: ABATACEPT
     Dosage: 250 MG, QMO
     Route: 042
  70. TRIAMCINOLONE ACETONIDE. [Suspect]
     Active Substance: TRIAMCINOLONE ACETONIDE
     Dosage: UNK
     Route: 065
  71. TRIAMCINOLONE ACETONIDE. [Suspect]
     Active Substance: TRIAMCINOLONE ACETONIDE
     Dosage: UNK
     Route: 065
  72. ADALIMUMAB [Suspect]
     Active Substance: ADALIMUMAB
     Indication: RHEUMATOID ARTHRITIS
     Dosage: UNK
     Route: 065
  73. INFLIXIMAB [Suspect]
     Active Substance: INFLIXIMAB
     Indication: JUVENILE IDIOPATHIC ARTHRITIS
     Dosage: 3 MG/KG (1 EVERY 6 WEEKS)
     Route: 042
  74. ANAKINRA [Suspect]
     Active Substance: ANAKINRA
     Dosage: 50 MG, Q24H
     Route: 058
  75. APO?PREDNISONE [Suspect]
     Active Substance: PREDNISONE
     Indication: JUVENILE IDIOPATHIC ARTHRITIS
     Dosage: 5 MG, BID
     Route: 048
  76. ENBREL [Suspect]
     Active Substance: ETANERCEPT
     Indication: RHEUMATOID ARTHRITIS
     Dosage: 12.5 MG, QW
     Route: 058
  77. ENBREL [Suspect]
     Active Substance: ETANERCEPT
     Dosage: 25 MG, QW
     Route: 058
  78. IMMUNOGLOBULIN [IMMUNOGLOBULINS NOS] [Suspect]
     Active Substance: IMMUNE GLOBULIN NOS
     Dosage: 70 G
     Route: 042
  79. HUMIRA [Suspect]
     Active Substance: ADALIMUMAB
     Indication: JUVENILE IDIOPATHIC ARTHRITIS
     Dosage: UNK
     Route: 058
  80. HUMIRA [Suspect]
     Active Substance: ADALIMUMAB
     Indication: RHEUMATOID ARTHRITIS
     Dosage: UNK (SOLUTION)
     Route: 058

REACTIONS (50)
  - Psoriasis [Not Recovered/Not Resolved]
  - Joint destruction [Not Recovered/Not Resolved]
  - Dizziness [Not Recovered/Not Resolved]
  - Arthritis [Not Recovered/Not Resolved]
  - Contraindicated product administered [Not Recovered/Not Resolved]
  - Nausea [Not Recovered/Not Resolved]
  - Drug specific antibody present [Not Recovered/Not Resolved]
  - Synovitis [Not Recovered/Not Resolved]
  - Rheumatoid arthritis [Not Recovered/Not Resolved]
  - Drug intolerance [Not Recovered/Not Resolved]
  - Antibody test positive [Not Recovered/Not Resolved]
  - Therapeutic product effect decreased [Not Recovered/Not Resolved]
  - Loss of consciousness [Not Recovered/Not Resolved]
  - Obesity [Not Recovered/Not Resolved]
  - Red blood cell sedimentation rate increased [Not Recovered/Not Resolved]
  - Body height below normal [Not Recovered/Not Resolved]
  - Joint effusion [Not Recovered/Not Resolved]
  - Joint injury [Not Recovered/Not Resolved]
  - Arthralgia [Not Recovered/Not Resolved]
  - Red blood cell sedimentation rate abnormal [Not Recovered/Not Resolved]
  - Prescribed underdose [Not Recovered/Not Resolved]
  - Condition aggravated [Not Recovered/Not Resolved]
  - Product use issue [Not Recovered/Not Resolved]
  - Gastroenteritis viral [Not Recovered/Not Resolved]
  - Short stature [Not Recovered/Not Resolved]
  - Underdose [Not Recovered/Not Resolved]
  - Drug ineffective [Not Recovered/Not Resolved]
  - Adrenal insufficiency [Not Recovered/Not Resolved]
  - Bone density decreased [Not Recovered/Not Resolved]
  - C-reactive protein increased [Not Recovered/Not Resolved]
  - Juvenile idiopathic arthritis [Not Recovered/Not Resolved]
  - Septic shock [Not Recovered/Not Resolved]
  - Human antichimeric antibody positive [Not Recovered/Not Resolved]
  - Bone density increased [Not Recovered/Not Resolved]
  - C-reactive protein abnormal [Not Recovered/Not Resolved]
  - Quality of life decreased [Not Recovered/Not Resolved]
  - Off label use [Not Recovered/Not Resolved]
  - Immunodeficiency [Not Recovered/Not Resolved]
  - Pleural effusion [Not Recovered/Not Resolved]
  - Diarrhoea [Not Recovered/Not Resolved]
  - Hypotension [Not Recovered/Not Resolved]
  - Hypokalaemia [Not Recovered/Not Resolved]
  - Hypocalcaemia [Not Recovered/Not Resolved]
  - Liver function test abnormal [Not Recovered/Not Resolved]
  - Mobility decreased [Not Recovered/Not Resolved]
  - Polyarthritis [Not Recovered/Not Resolved]
  - Vomiting [Not Recovered/Not Resolved]
  - Pyrexia [Not Recovered/Not Resolved]
  - Arthropathy [Not Recovered/Not Resolved]
  - Therapy non-responder [Not Recovered/Not Resolved]
